FAERS Safety Report 12369750 (Version 2)
Quarter: 2017Q3

REPORT INFORMATION
  Report Type: Report from Study
  Country: DE (occurrence: DE)
  Receive Date: 20160516
  Receipt Date: 20170901
  Transmission Date: 20171127
  Serious: Yes (Death, Hospitalization)
  Sender: FDA-Public Use
  Company Number: DE-ROCHE-1758609

PATIENT
  Sex: Male
  Weight: 89 kg

DRUGS (2)
  1. PIRFENIDONE. [Suspect]
     Active Substance: PIRFENIDONE
     Indication: IDIOPATHIC PULMONARY FIBROSIS
     Route: 048
     Dates: start: 20140520
  2. PIRFENIDONE. [Suspect]
     Active Substance: PIRFENIDONE
     Route: 048
     Dates: start: 20140601, end: 20150314

REACTIONS (3)
  - Renal failure [Fatal]
  - Pneumonia [Fatal]
  - Hypoventilation [Fatal]

NARRATIVE: CASE EVENT DATE: 2015
